FAERS Safety Report 18231002 (Version 1)
Quarter: 2020Q3

REPORT INFORMATION
  Report Type: Spontaneous
  Country: US (occurrence: US)
  Receive Date: 20200904
  Receipt Date: 20200904
  Transmission Date: 20201103
  Serious: No
  Sender: FDA-Public Use
  Company Number: US-BIOGEN-2020BI00919787

PATIENT
  Sex: Female

DRUGS (1)
  1. PLEGRIDY [Suspect]
     Active Substance: PEGINTERFERON BETA-1A
     Indication: MULTIPLE SCLEROSIS
     Dosage: FORMULATION: LIQ
     Route: 058
     Dates: start: 20170107

REACTIONS (2)
  - Product dose omission issue [Unknown]
  - Multiple sclerosis relapse [Not Recovered/Not Resolved]
